FAERS Safety Report 17747169 (Version 4)
Quarter: 2020Q3

REPORT INFORMATION
  Report Type: Spontaneous
  Country: US (occurrence: US)
  Receive Date: 20200505
  Receipt Date: 20200729
  Transmission Date: 20201102
  Serious: Yes (Death)
  Sender: FDA-Public Use
  Company Number: NVSC2020US119948

PATIENT
  Age: 65 Year
  Sex: Male

DRUGS (4)
  1. ENTRESTO [Suspect]
     Active Substance: SACUBITRIL\VALSARTAN
     Dosage: 1 DF, BID (97/103MG)
     Route: 065
  2. ENTRESTO [Suspect]
     Active Substance: SACUBITRIL\VALSARTAN
     Indication: CARDIOMYOPATHY
     Dosage: UNK
     Route: 065
     Dates: start: 201611
  3. CARVEDILOL. [Suspect]
     Active Substance: CARVEDILOL
     Indication: HYPERTENSION
     Dosage: UNK
     Route: 065
  4. SPIRONOLACTONE. [Suspect]
     Active Substance: SPIRONOLACTONE
     Indication: FLUID RETENTION
     Dosage: UNK
     Route: 065

REACTIONS (5)
  - Ejection fraction decreased [Unknown]
  - Death [Fatal]
  - Drug resistance [Unknown]
  - Product use in unapproved indication [Unknown]
  - Dyspnoea [Unknown]

NARRATIVE: CASE EVENT DATE: 201910
